FAERS Safety Report 7151582-0 (Version None)
Quarter: 2010Q4

REPORT INFORMATION
  Report Type: 
  Country: None (occurrence: None)
  Receive Date: 20101124
  Receipt Date: 20101112
  Transmission Date: 20110411
  Serious: Yes (Death, Hospitalization)
  Sender: FDA-Public Use
  Company Number: UTC-002340

PATIENT
  Age: 69 Year
  Sex: Female

DRUGS (3)
  1. REMODULIN [Suspect]
     Indication: PULMONARY ARTERIAL HYPERTENSION
     Dosage: 67.68 UG/KG (0.047 UG/KG, 1 IN 1 MIN), INTRAVENOUS
     Route: 042
     Dates: start: 20070726
  2. COUMADIN [Concomitant]
  3. DIURETICS (DIURETICS) [Concomitant]

REACTIONS (2)
  - FLUID RETENTION [None]
  - PNEUMONIA [None]
